FAERS Safety Report 13849235 (Version 1)
Quarter: 2017Q3

REPORT INFORMATION
  Report Type: Spontaneous
  Country: US (occurrence: US)
  Receive Date: 20170809
  Receipt Date: 20170809
  Transmission Date: 20171127
  Serious: Yes (Hospitalization, Disabling)
  Sender: FDA-Public Use
  Company Number: None

PATIENT
  Age: 60 Year
  Sex: Female
  Weight: 106.23 kg

DRUGS (40)
  1. CLONAZEPAM. [Concomitant]
     Active Substance: CLONAZEPAM
  2. AMINO ACID [Concomitant]
     Active Substance: AMINO ACIDS
  3. VITAMIN B12 [Concomitant]
     Active Substance: CYANOCOBALAMIN
  4. MULTI VITAMINS [Concomitant]
     Active Substance: VITAMINS
  5. DICYCLOMINE [Concomitant]
     Active Substance: DICYCLOMINE HYDROCHLORIDE
  6. LYRICA [Concomitant]
     Active Substance: PREGABALIN
  7. CALCIUM [Concomitant]
     Active Substance: CALCIUM
  8. TRAMADOL. [Concomitant]
     Active Substance: TRAMADOL
  9. LIPITOR [Concomitant]
     Active Substance: ATORVASTATIN CALCIUM
  10. IRON [Concomitant]
     Active Substance: IRON
  11. ACYLOVIR [Concomitant]
  12. MELOXICAM. [Concomitant]
     Active Substance: MELOXICAM
  13. CIPROFLOXACIN. [Concomitant]
     Active Substance: CIPROFLOXACIN
  14. LORAZEPAM. [Concomitant]
     Active Substance: LORAZEPAM
  15. VITAMIN C [Concomitant]
     Active Substance: ASCORBIC ACID
  16. PREDNISONE. [Concomitant]
     Active Substance: PREDNISONE
  17. SIMVASTATIN. [Concomitant]
     Active Substance: SIMVASTATIN
  18. TOPIRAMATE. [Concomitant]
     Active Substance: TOPIRAMATE
  19. RANITIDANE [Concomitant]
  20. CHROMIUM [Concomitant]
     Active Substance: CHROMIC CHLORIDE\CHROMIUM
  21. VITAMIN D3 [Concomitant]
     Active Substance: CHOLECALCIFEROL
  22. ZOLOFT [Suspect]
     Active Substance: SERTRALINE HYDROCHLORIDE
     Indication: DEPRESSION
     Dosage: 2 DAILY PILLS
     Route: 048
     Dates: start: 1996
  23. LINZESS [Concomitant]
     Active Substance: LINACLOTIDE
  24. DEPAKOTE ER [Concomitant]
     Active Substance: DIVALPROEX SODIUM
  25. DILANTIN [Concomitant]
     Active Substance: PHENYTOIN
  26. CALCIUM + D2 [Concomitant]
  27. ADVIL [Concomitant]
     Active Substance: IBUPROFEN
  28. FLAX SEED [Concomitant]
     Active Substance: FLAX SEED
  29. PROPRANOLOL [Concomitant]
     Active Substance: PROPRANOLOL HYDROCHLORIDE
  30. ASCORBIC ACID. [Concomitant]
     Active Substance: ASCORBIC ACID
  31. PROZAC [Concomitant]
     Active Substance: FLUOXETINE HYDROCHLORIDE
  32. TYLENOL [Concomitant]
     Active Substance: ACETAMINOPHEN
  33. KEPPRA (LEVITIRACETAM) [Concomitant]
  34. GERITOL [Concomitant]
     Active Substance: MINERALS\VITAMINS
  35. CENTRAVITES 50 PLUS [Concomitant]
  36. IBUPROFEN PM [Concomitant]
     Active Substance: DIPHENHYDRAMINE CITRATE\IBUPROFEN
  37. OMEGA 3 [Concomitant]
     Active Substance: OMEGA-3 FATTY ACIDS
  38. TIZANIDINE. [Concomitant]
     Active Substance: TIZANIDINE
  39. CINNAMON. [Concomitant]
     Active Substance: CINNAMON
  40. REG. STRENGTH ANTACID [Concomitant]

REACTIONS (6)
  - Abdominal pain [None]
  - Vomiting [None]
  - Seizure [None]
  - Headache [None]
  - Tremor [None]
  - Hypoaesthesia [None]

NARRATIVE: CASE EVENT DATE: 2005
